FAERS Safety Report 11944802 (Version 1)
Quarter: 2016Q1

REPORT INFORMATION
  Report Type: Spontaneous
  Country: RU (occurrence: RU)
  Receive Date: 20160125
  Receipt Date: 20160125
  Transmission Date: 20160526
  Serious: Yes (Other)
  Sender: FDA-Public Use
  Company Number: RU-JNJFOC-20160115160

PATIENT
  Sex: Male

DRUGS (4)
  1. PREZISTA [Suspect]
     Active Substance: DARUNAVIR ETHANOLATE
     Indication: HIV INFECTION
     Route: 048
  2. KIVEXA [Concomitant]
     Active Substance: ABACAVIR SULFATE\LAMIVUDINE
     Route: 065
  3. REYATAZ [Concomitant]
     Active Substance: ATAZANAVIR SULFATE
     Route: 065
  4. COMBIVIR [Concomitant]
     Active Substance: LAMIVUDINE\ZIDOVUDINE
     Route: 065

REACTIONS (5)
  - Nasal congestion [Unknown]
  - Abdominal discomfort [Unknown]
  - Weight increased [Unknown]
  - Blood bilirubin increased [Unknown]
  - Intestinal polyp [Unknown]
